FAERS Safety Report 10083457 (Version 1)
Quarter: 2014Q2

REPORT INFORMATION
  Report Type: Spontaneous
  Country: US (occurrence: None)
  Receive Date: 20140416
  Receipt Date: 20140416
  Transmission Date: 20141212
  Serious: Yes (Hospitalization)
  Sender: FDA-Public Use
  Company Number: None

PATIENT
  Age: 51 Year
  Sex: Male
  Weight: 65.9 kg

DRUGS (3)
  1. PEG-INTRON [Suspect]
     Indication: CHRONIC HEPATITIS C
     Dosage: 150MCG, 1X/WEEKLY, SUBCUTANEOUS INJECTION
     Route: 058
     Dates: start: 20140303
  2. RIBAVIRIN [Suspect]
     Route: 048
  3. SOFOSBUVIR 400MG [Concomitant]

REACTIONS (5)
  - Syncope [None]
  - Syncope [None]
  - Laceration [None]
  - Refusal of treatment by patient [None]
  - Head injury [None]
